FAERS Safety Report 12419896 (Version 3)
Quarter: 2016Q3

REPORT INFORMATION
  Report Type: Spontaneous
  Country: TW (occurrence: TW)
  Receive Date: 20160531
  Receipt Date: 20160812
  Transmission Date: 20161109
  Serious: Yes (Death, Hospitalization, Other)
  Sender: FDA-Public Use
  Company Number: TW-AMGEN-TWNSP2016068265

PATIENT
  Age: 49 Year
  Sex: Female

DRUGS (6)
  1. QUININE [Concomitant]
     Active Substance: QUININE
     Dosage: UNK
  2. QUININE [Concomitant]
     Active Substance: QUININE
     Indication: RHEUMATOID ARTHRITIS
     Dosage: UNK
  3. METHOTREXATE (METHOTREXATE SODIUM) [Concomitant]
     Active Substance: METHOTREXATE SODIUM
     Indication: RHEUMATOID ARTHRITIS
     Dosage: UNK
  4. MTX [Concomitant]
     Active Substance: METHOTREXATE SODIUM
     Indication: RHEUMATOID ARTHRITIS
     Dosage: UNK
  5. ENBREL [Suspect]
     Active Substance: ETANERCEPT
     Indication: RHEUMATOID ARTHRITIS
     Dosage: 25 MG, WEEKLY
     Route: 058
     Dates: start: 200509
  6. QUININE [Concomitant]
     Active Substance: QUININE
     Dosage: UNK

REACTIONS (5)
  - Ovarian cancer [Not Recovered/Not Resolved]
  - Metastasis [Not Recovered/Not Resolved]
  - Loss of consciousness [Not Recovered/Not Resolved]
  - Respiratory failure [Fatal]
  - Shock [Not Recovered/Not Resolved]

NARRATIVE: CASE EVENT DATE: 20160510
